FAERS Safety Report 19816943 (Version 1)
Quarter: 2021Q3

REPORT INFORMATION
  Report Type: Report from Study
  Country: None (occurrence: IE)
  Receive Date: 20210910
  Receipt Date: 20210910
  Transmission Date: 20211014
  Serious: Yes (Death, Hospitalization)
  Sender: FDA-Public Use
  Company Number: IE-ABBVIE-21K-229-4071889-00

PATIENT
  Age: 16 Year
  Sex: Male

DRUGS (1)
  1. HUMIRA [Suspect]
     Active Substance: ADALIMUMAB
     Indication: UVEITIS
     Route: 058
     Dates: start: 20160629

REACTIONS (5)
  - Sepsis [Fatal]
  - Vomiting [Fatal]
  - Kidney infection [Fatal]
  - Myocardial infarction [Fatal]
  - Malaise [Fatal]

NARRATIVE: CASE EVENT DATE: 202101
